FAERS Safety Report 5160647-4 (Version None)
Quarter: 2006Q4

REPORT INFORMATION
  Report Type: 
  Country: None (occurrence: None)
  Receive Date: 20061121
  Receipt Date: 20061108
  Transmission Date: 20070319
  Serious: Yes (Other)
  Sender: FDA-Public Use
  Company Number: 2006138134

PATIENT
  Sex: Female

DRUGS (5)
  1. NEURONTIN [Suspect]
     Indication: POLYNEUROPATHY
     Dosage: 3200 MG (800 MG, 4 IN D)
     Dates: end: 20061001
  2. LYRICA [Suspect]
     Indication: POLYNEUROPATHY
     Dosage: 150 MG (75 MG, 2 IN 1 D)
     Dates: start: 20061001
  3. IRON (IRON) [Concomitant]
  4. PLATELETS [Concomitant]
  5. ALL OTHER THERAPEUTIC PRODUCTS (ALL OTHER THERAPEUTIC PRODUCTS) [Concomitant]

REACTIONS (5)
  - AORTIC VALVE REPLACEMENT [None]
  - BLOOD DISORDER [None]
  - KNEE ARTHROPLASTY [None]
  - MUSCLE DISORDER [None]
  - STAPHYLOCOCCAL INFECTION [None]
